FAERS Safety Report 8440874 (Version 6)
Quarter: 2013Q3

REPORT INFORMATION
  Report Type: Spontaneous
  Country: JP (occurrence: JP)
  Receive Date: 20120305
  Receipt Date: 20130705
  Transmission Date: 20140515
  Serious: Yes (Death, Hospitalization)
  Sender: FDA-Public Use
  Company Number: JP-JNJFOC-20120212395

PATIENT
  Age: 33 Year
  Sex: Male
  Weight: 53 kg

DRUGS (11)
  1. REMICADE [Suspect]
     Indication: CROHN^S DISEASE
     Route: 042
     Dates: start: 20091205
  2. REMICADE [Suspect]
     Indication: CROHN^S DISEASE
     Route: 042
     Dates: start: 20090905
  3. REMICADE [Suspect]
     Indication: CROHN^S DISEASE
     Route: 042
     Dates: start: 20090613
  4. REMICADE [Suspect]
     Indication: CROHN^S DISEASE
     Dosage: 30TH DOSE OF INFLIXIMAB
     Route: 042
     Dates: start: 20120113
  5. REMICADE [Suspect]
     Indication: CROHN^S DISEASE
     Route: 042
     Dates: start: 20081115
  6. REMICADE [Suspect]
     Indication: CROHN^S DISEASE
     Route: 042
     Dates: start: 20080409
  7. REMICADE [Suspect]
     Indication: CROHN^S DISEASE
     Route: 042
     Dates: start: 20080227
  8. REMICADE [Suspect]
     Indication: CROHN^S DISEASE
     Dosage: 28TH DOSE OF IFLIXIMAB
     Route: 042
     Dates: start: 20111118
  9. REMICADE [Suspect]
     Indication: CROHN^S DISEASE
     Route: 042
     Dates: start: 20090324
  10. IMURAN [Suspect]
     Indication: THERAPEUTIC RESPONSE DECREASED
     Route: 048
     Dates: start: 20110304, end: 20120208
  11. IMURAN [Suspect]
     Indication: THERAPEUTIC RESPONSE DECREASED
     Route: 048
     Dates: start: 20090316

REACTIONS (2)
  - Staphylococcus test [Unknown]
  - Hepatosplenic T-cell lymphoma [Fatal]
